FAERS Safety Report 4315319-2 (Version None)
Quarter: 2004Q1

REPORT INFORMATION
  Report Type: 
  Country: None (occurrence: None)
  Receive Date: 20040310
  Receipt Date: 20040310
  Transmission Date: 20041129
  Serious: Yes (Hospitalization)
  Sender: FDA-Public Use
  Company Number: None

PATIENT
  Age: 52 Year
  Sex: Female
  Weight: 53.5244 kg

DRUGS (3)
  1. METHYLPHENIDATE HCL [Suspect]
     Indication: BRAIN NEOPLASM
     Dosage: 15 MG BID 1 PO
     Route: 048
     Dates: start: 20031025, end: 20031222
  2. RADIATION [Concomitant]
  3. TEMODAR [Concomitant]

REACTIONS (2)
  - FEBRILE NEUTROPENIA [None]
  - PNEUMONIA [None]
